FAERS Safety Report 12071778 (Version 1)
Quarter: 2016Q1

REPORT INFORMATION
  Report Type: Spontaneous
  Country: EG (occurrence: EG)
  Receive Date: 20160212
  Receipt Date: 20160212
  Transmission Date: 20160526
  Serious: Yes (Other)
  Sender: FDA-Public Use
  Company Number: EG-ROCHE-1707592

PATIENT

DRUGS (1)
  1. AVASTIN [Suspect]
     Active Substance: BEVACIZUMAB
     Indication: DIABETIC RETINAL OEDEMA
     Route: 065
     Dates: start: 20160201

REACTIONS (7)
  - Exophthalmos [Unknown]
  - Eye inflammation [Unknown]
  - Eye swelling [Unknown]
  - Off label use [Unknown]
  - Medication error [Unknown]
  - Eye haemorrhage [Unknown]
  - Blindness [Unknown]
